FAERS Safety Report 8305526-6 (Version None)
Quarter: 2012Q2

REPORT INFORMATION
  Report Type: 
  Country: None (occurrence: None)
  Receive Date: 20120423
  Receipt Date: 20120412
  Transmission Date: 20120825
  Serious: Yes (Hospitalization)
  Sender: FDA-Public Use
  Company Number: IE-GLAXOSMITHKLINE-B0796449A

PATIENT
  Sex: Female
  Weight: 69.7 kg

DRUGS (10)
  1. CARBOPLATIN [Suspect]
     Indication: BREAST CANCER
     Dosage: 720MG CYCLIC
     Route: 042
     Dates: start: 20111221
  2. DOMPERIDONE [Concomitant]
     Indication: NAUSEA
     Dosage: 90MG PER DAY
     Route: 048
     Dates: start: 20120404
  3. LOPERAMIDE [Concomitant]
     Indication: DIARRHOEA
     Dosage: 16MG AS REQUIRED
     Route: 048
     Dates: start: 20120404
  4. OMEPRAZOLE [Concomitant]
     Indication: GASTROOESOPHAGEAL REFLUX DISEASE
     Dosage: 20MG PER DAY
     Route: 048
     Dates: start: 20120404, end: 20120409
  5. HERCEPTIN [Suspect]
     Indication: BREAST CANCER
     Dosage: 441MG CYCLIC
     Route: 042
     Dates: start: 20120111
  6. DEXAMETHASONE [Concomitant]
     Dosage: 16MG PER DAY
     Route: 048
     Dates: start: 20120403, end: 20120405
  7. NEULASTA [Concomitant]
     Dosage: 6MCG PER DAY
     Route: 058
     Dates: start: 20120405, end: 20120405
  8. CYCLIZINE [Concomitant]
     Indication: NAUSEA
     Dosage: 150MG AS REQUIRED
     Route: 048
     Dates: start: 20120404
  9. LAPATINIB [Suspect]
     Indication: BREAST CANCER
     Dosage: 1000MG PER DAY
     Route: 048
     Dates: start: 20111221
  10. DOCETAXEL [Suspect]
     Indication: BREAST CANCER
     Dosage: 130MG CYCLIC
     Route: 042
     Dates: start: 20111221

REACTIONS (3)
  - NAUSEA [None]
  - VOMITING [None]
  - NEUTROPENIA [None]
